FAERS Safety Report 22345075 (Version 1)
Quarter: 2023Q2

REPORT INFORMATION
  Report Type: Report from Study
  Country: ID (occurrence: None)
  Receive Date: 20230519
  Receipt Date: 20230519
  Transmission Date: 20230721
  Serious: Yes (Death)
  Sender: FDA-Public Use
  Company Number: 2023A114890

PATIENT
  Age: 27413 Day
  Sex: Female

DRUGS (2)
  1. FASLODEX [Suspect]
     Active Substance: FULVESTRANT
     Indication: Menopausal symptoms
     Dosage: 10 TIMES
     Route: 030
     Dates: start: 20220616
  2. FASLODEX [Suspect]
     Active Substance: FULVESTRANT
     Indication: HER2 positive breast cancer
     Dosage: 10 TIMES
     Route: 030
     Dates: start: 20220616

REACTIONS (1)
  - Death [Fatal]

NARRATIVE: CASE EVENT DATE: 20230424
